FAERS Safety Report 5318258-3 (Version None)
Quarter: 2007Q2

REPORT INFORMATION
  Report Type: 
  Country: None (occurrence: None)
  Receive Date: 20070507
  Receipt Date: 20070427
  Transmission Date: 20071010
  Serious: Yes (Other)
  Sender: FDA-Public Use
  Company Number: PHEH2007US06503

PATIENT
  Age: 50 Year
  Sex: Female

DRUGS (2)
  1. PRILOSEC [Concomitant]
     Indication: GASTROOESOPHAGEAL REFLUX DISEASE
  2. ZELNORM [Suspect]
     Indication: IRRITABLE BOWEL SYNDROME
     Dosage: 6 MG, QD
     Route: 048
     Dates: start: 20051001, end: 20070425

REACTIONS (3)
  - CHEST PAIN [None]
  - HEART RATE IRREGULAR [None]
  - MUSCLE SPASMS [None]
